FAERS Safety Report 7508006-0 (Version None)
Quarter: 2011Q2

REPORT INFORMATION
  Report Type: 
  Country: None (occurrence: None)
  Receive Date: 20110527
  Receipt Date: 20110524
  Transmission Date: 20111010
  Serious: Yes (Hospitalization)
  Sender: FDA-Public Use
  Company Number: DE-AMGEN-DEUSP2011026648

PATIENT
  Age: 39 Year
  Sex: Male
  Weight: 102 kg

DRUGS (1)
  1. NEUPOGEN [Suspect]
     Indication: PRODUCT USED FOR UNKNOWN INDICATION
     Dosage: 480 A?G, UNK
     Route: 058
     Dates: start: 20101210

REACTIONS (6)
  - PANCREATITIS [None]
  - LIPASE INCREASED [None]
  - ABDOMINAL PAIN UPPER [None]
  - BLOOD AMYLASE INCREASED [None]
  - SPLENOMEGALY [None]
  - HYPERTRIGLYCERIDAEMIA [None]
